FAERS Safety Report 20041446 (Version 1)
Quarter: 2021Q4

REPORT INFORMATION
  Report Type: Spontaneous
  Country: US (occurrence: US)
  Receive Date: 20211108
  Receipt Date: 20211108
  Transmission Date: 20220303
  Serious: No
  Sender: FDA-Public Use
  Company Number: US-drreddys-SPO/USA/21/0143366

PATIENT
  Sex: Male

DRUGS (1)
  1. MYOFLEX [Suspect]
     Active Substance: TROLAMINE SALICYLATE
     Indication: Product used for unknown indication
     Dates: start: 20211031

REACTIONS (1)
  - Expired product administered [Unknown]
